FAERS Safety Report 16007830 (Version 1)
Quarter: 2019Q1

REPORT INFORMATION
  Report Type: Report from Study
  Country: US (occurrence: US)
  Receive Date: 20190226
  Receipt Date: 20190226
  Transmission Date: 20190418
  Serious: Yes (Hospitalization)
  Sender: FDA-Public Use
  Company Number: US-ALEXION PHARMACEUTICALS INC.-A201902794

PATIENT
  Sex: Female

DRUGS (1)
  1. SOLIRIS [Suspect]
     Active Substance: ECULIZUMAB
     Indication: PAROXYSMAL NOCTURNAL HAEMOGLOBINURIA
     Dosage: UNK
     Route: 065

REACTIONS (6)
  - Enzyme level increased [Not Recovered/Not Resolved]
  - Bacterial infection [Not Recovered/Not Resolved]
  - Ascites [Not Recovered/Not Resolved]
  - Lethargy [Unknown]
  - Hepatic enzyme increased [Not Recovered/Not Resolved]
  - Swelling [Unknown]

NARRATIVE: CASE EVENT DATE: 20190218
